FAERS Safety Report 25829229 (Version 3)
Quarter: 2025Q4

REPORT INFORMATION
  Report Type: Other
  Country: US (occurrence: US)
  Receive Date: 20250922
  Receipt Date: 20251121
  Transmission Date: 20260118
  Serious: No
  Sender: TRAVERE THERAPEUTICS
  Company Number: US-TRAVERE-2025TVT01381

PATIENT
  Age: 47 Year
  Sex: Male

DRUGS (2)
  1. FILSPARI [Suspect]
     Active Substance: SPARSENTAN
     Indication: IgA nephropathy
     Route: 048
     Dates: start: 20250723
  2. FILSPARI [Suspect]
     Active Substance: SPARSENTAN
     Route: 048

REACTIONS (6)
  - Gastrooesophageal reflux disease [Unknown]
  - Blepharospasm [Unknown]
  - Liver function test increased [Unknown]
  - Balance disorder [Recovering/Resolving]
  - Abdominal discomfort [None]
  - Product dose omission issue [Unknown]

NARRATIVE: CASE EVENT DATE: 20250801
